FAERS Safety Report 15551299 (Version 1)
Quarter: 2018Q4

REPORT INFORMATION
  Report Type: Spontaneous
  Country: US (occurrence: US)
  Receive Date: 20181022
  Receipt Date: 20181022
  Transmission Date: 20190205
  Serious: Yes (Other)
  Sender: FDA-Public Use
  Company Number: None

PATIENT
  Age: 53 Year
  Sex: Female

DRUGS (10)
  1. GINGER ROOT [Concomitant]
     Active Substance: GINGER
  2. ANASTRAZOLE [Concomitant]
     Active Substance: ANASTROZOLE
  3. FLONASE [Concomitant]
     Active Substance: FLUTICASONE PROPIONATE
  4. TAMSULOSIN 0.4 MG CAPSULES [Concomitant]
  5. LEVOTHYROXINE 0.175 MG TABLETS [Concomitant]
  6. ZYRTEC [Concomitant]
     Active Substance: CETIRIZINE HYDROCHLORIDE
     Indication: BREAST CANCER
  7. TUMERIC [Concomitant]
     Active Substance: HERBALS\TURMERIC
  8. IBRANCE [Suspect]
     Active Substance: PALBOCICLIB
     Indication: BREAST CANCER
     Route: 048
     Dates: start: 20180823
  9. GABAPENTIN 300 MG CAPSULES [Concomitant]
     Active Substance: GABAPENTIN
  10. METHOCARBAMOL 750 MG TABLETS [Concomitant]

REACTIONS (3)
  - Wound [None]
  - Skin injury [None]
  - Increased tendency to bruise [None]

NARRATIVE: CASE EVENT DATE: 201810
